FAERS Safety Report 20099027 (Version 1)
Quarter: 2021Q4

REPORT INFORMATION
  Report Type: Spontaneous
  Country: CN (occurrence: CN)
  Receive Date: 20211122
  Receipt Date: 20211122
  Transmission Date: 20220303
  Serious: Yes (Hospitalization, Other)
  Sender: FDA-Public Use
  Company Number: CN-NAPPMUNDI-GBR-2021-0092674

PATIENT
  Age: 81 Year
  Sex: Male

DRUGS (1)
  1. MS CONTIN [Suspect]
     Active Substance: MORPHINE SULFATE
     Indication: Analgesic therapy
     Dosage: 60 MG, Q12H
     Route: 048
     Dates: start: 20211103, end: 20211105

REACTIONS (3)
  - Dysuria [Unknown]
  - Muscular weakness [Unknown]
  - Confusional state [Unknown]

NARRATIVE: CASE EVENT DATE: 20211103
